FAERS Safety Report 17469866 (Version 1)
Quarter: 2020Q1

REPORT INFORMATION
  Report Type: Spontaneous
  Country: IN (occurrence: IN)
  Receive Date: 20200227
  Receipt Date: 20200227
  Transmission Date: 20200409
  Serious: Yes (Other)
  Sender: FDA-Public Use
  Company Number: IN-BAUSCH-BL-2020-004735

PATIENT
  Age: 46 Year
  Sex: Female

DRUGS (8)
  1. PREDNISOLONE ACETATE. [Suspect]
     Active Substance: PREDNISOLONE ACETATE
     Dosage: RESTARTED
     Route: 061
  2. METHOTREXATE. [Suspect]
     Active Substance: METHOTREXATE
     Indication: NECROTISING SCLERITIS
     Route: 048
  3. METHOTREXATE. [Suspect]
     Active Substance: METHOTREXATE
     Indication: GRANULOMATOSIS WITH POLYANGIITIS
     Route: 048
  4. FOLIC ACID. [Suspect]
     Active Substance: FOLIC ACID
     Indication: NECROTISING SCLERITIS
     Route: 048
  5. FOLIC ACID. [Suspect]
     Active Substance: FOLIC ACID
     Indication: GRANULOMATOSIS WITH POLYANGIITIS
  6. PREDNISOLONE ACETATE. [Suspect]
     Active Substance: PREDNISOLONE ACETATE
     Indication: NECROTISING SCLERITIS
     Route: 061
  7. TRIAMCINOLONE ACETONIDE. [Concomitant]
     Active Substance: TRIAMCINOLONE ACETONIDE
     Indication: SCLERITIS
     Dosage: SUBTENONS INJECTION OF TRIAMCINOLONE ACETONIDE SUSPENSION, 40 MG/ML
     Route: 065
  8. ATROPINE. [Suspect]
     Active Substance: ATROPINE
     Indication: NECROTISING SCLERITIS
     Route: 061

REACTIONS (3)
  - Necrotising scleritis [Recovering/Resolving]
  - Disease progression [Recovering/Resolving]
  - Treatment noncompliance [Unknown]
